FAERS Safety Report 7340927-4 (Version None)
Quarter: 2011Q1

REPORT INFORMATION
  Report Type: 
  Country: None (occurrence: None)
  Receive Date: 20110309
  Receipt Date: 20100602
  Transmission Date: 20110831
  Serious: No
  Sender: FDA-Public Use
  Company Number: US-ABBOTT-10P-163-0648477-00

PATIENT
  Sex: Female
  Weight: 78.088 kg

DRUGS (1)
  1. LUPRON DEPOT [Suspect]
     Indication: ENDOMETRIOSIS
     Dosage: RECEIVED 2 INJECTION
     Route: 030
     Dates: start: 20100214, end: 20100519

REACTIONS (9)
  - MYALGIA [None]
  - DYSPEPSIA [None]
  - BRONCHITIS [None]
  - PARAESTHESIA [None]
  - EAR PAIN [None]
  - MUSCULOSKELETAL DISCOMFORT [None]
  - NEUROPATHY PERIPHERAL [None]
  - HYPOAESTHESIA [None]
  - MUSCULAR WEAKNESS [None]
